FAERS Safety Report 6221614-2 (Version None)
Quarter: 2009Q2

REPORT INFORMATION
  Report Type: 
  Country: None (occurrence: None)
  Receive Date: 20090610
  Receipt Date: 20090605
  Transmission Date: 20091009
  Serious: Yes (Other)
  Sender: FDA-Public Use
  Company Number: CO-ASTRAZENECA-2009UW14666

PATIENT
  Age: 72 Year
  Sex: Female

DRUGS (4)
  1. SEROQUEL [Suspect]
     Indication: VASCULAR DEMENTIA
     Route: 048
     Dates: start: 20081222, end: 20090515
  2. SEROQUEL [Suspect]
     Route: 048
  3. LEVOTHYROXINE [Concomitant]
     Indication: DEMENTIA
     Route: 048
  4. HALOPERIDOL [Concomitant]
     Indication: DEMENTIA
     Route: 048
     Dates: start: 20090515

REACTIONS (1)
  - OESOPHAGITIS [None]
